FAERS Safety Report 19458179 (Version 1)
Quarter: 2021Q2

REPORT INFORMATION
  Report Type: Spontaneous
  Country: US (occurrence: US)
  Receive Date: 20210624
  Receipt Date: 20210624
  Transmission Date: 20210717
  Serious: Yes (Other)
  Sender: FDA-Public Use
  Company Number: US-MYLANLABS-2021M1036850

PATIENT
  Age: 43 Year
  Sex: Male

DRUGS (11)
  1. ZIPRASIDONE. [Suspect]
     Active Substance: ZIPRASIDONE
     Indication: MOVEMENT DISORDER
     Dosage: UNK
     Route: 065
  2. HYDROXYZINE [Concomitant]
     Active Substance: HYDROXYZINE HYDROCHLORIDE
     Indication: PRODUCT USED FOR UNKNOWN INDICATION
     Dosage: 50 MILLIGRAM
     Route: 065
  3. CLONAZEPAM. [Concomitant]
     Active Substance: CLONAZEPAM
     Indication: PRODUCT USED FOR UNKNOWN INDICATION
     Dosage: 2 MILLIGRAM, PRN, AS NEEDED
     Route: 065
  4. VORTIOXETINE. [Concomitant]
     Active Substance: VORTIOXETINE
     Indication: PRODUCT USED FOR UNKNOWN INDICATION
     Dosage: 20 MILLIGRAM
     Route: 065
  5. CYCLOBENZAPRINE. [Concomitant]
     Active Substance: CYCLOBENZAPRINE
     Indication: PRODUCT USED FOR UNKNOWN INDICATION
     Dosage: 10 MILLIGRAM
     Route: 065
  6. QUETIAPINE. [Suspect]
     Active Substance: QUETIAPINE
     Indication: MOVEMENT DISORDER
     Dosage: UNK
     Route: 065
  7. ZICONOTIDE [Concomitant]
     Active Substance: ZICONOTIDE
     Indication: DIABETIC NEUROPATHY
     Dosage: INTRATHECAL INFUSION PUMP; INITIAL DOSE NOT STATED
     Route: 037
     Dates: start: 201703
  8. ZICONOTIDE [Concomitant]
     Active Substance: ZICONOTIDE
     Dosage: 7 MICROGRAM, QD, INTRATHECAL INFUSION PUMP RATE INCREASED
     Route: 037
     Dates: start: 201809
  9. ZICONOTIDE [Concomitant]
     Active Substance: ZICONOTIDE
     Dosage: 9 MICROGRAM, QD, INTRATHECAL INFUSION PUMP RATE INCREASED
     Route: 037
     Dates: start: 201812, end: 201903
  10. TRIHEXYPHENIDYL [Suspect]
     Active Substance: TRIHEXYPHENIDYL
     Indication: MOVEMENT DISORDER
     Dosage: UNK
     Route: 065
  11. TOPIRAMATE. [Concomitant]
     Active Substance: TOPIRAMATE
     Indication: PRODUCT USED FOR UNKNOWN INDICATION
     Dosage: 100 MILLIGRAM, BID
     Route: 065

REACTIONS (2)
  - Drug ineffective for unapproved indication [Unknown]
  - Off label use [Unknown]
